FAERS Safety Report 8829255 (Version 1)
Quarter: 2012Q4

REPORT INFORMATION
  Report Type: 
  Country: US (occurrence: US)
  Receive Date: 20121009
  Receipt Date: 20121009
  Transmission Date: 20130627
  Serious: Yes (Hospitalization, Other)
  Sender: FDA-Public Use
  Company Number: US-AMGEN-USASP2012063412

PATIENT
  Sex: Female

DRUGS (1)
  1. ENBREL [Suspect]
     Indication: JUVENILE ARTHRITIS
     Dosage: UNK

REACTIONS (7)
  - Multiple fractures [Unknown]
  - Pyelonephritis [Unknown]
  - Sepsis [Unknown]
  - Urinary tract infection [Unknown]
  - Asthma [Unknown]
  - Osteopenia [Unknown]
  - Injection site pain [Unknown]
